FAERS Safety Report 9902998 (Version 1)
Quarter: 2014Q1

REPORT INFORMATION
  Report Type: Spontaneous
  Country: JP (occurrence: JP)
  Receive Date: 20140217
  Receipt Date: 20140217
  Transmission Date: 20141002
  Serious: No
  Sender: FDA-Public Use
  Company Number: CHPA2014JP002447

PATIENT
  Age: 15 Month
  Sex: Male

DRUGS (1)
  1. LAMISIL [Suspect]
     Indication: ACCIDENTAL EXPOSURE TO PRODUCT
     Dosage: UNK
     Route: 048
     Dates: start: 20140205

REACTIONS (2)
  - Incorrect dose administered [Unknown]
  - Incorrect route of drug administration [Unknown]
